FAERS Safety Report 8909435 (Version 1)
Quarter: 2012Q4

REPORT INFORMATION
  Report Type: 
  Country: US (occurrence: US)
  Receive Date: 20121114
  Receipt Date: 20121114
  Transmission Date: 20130627
  Serious: Yes (Other)
  Sender: FDA-Public Use
  Company Number: US-MYLANLABS-2012S1023045

PATIENT
  Age: 59 Year
  Sex: Male

DRUGS (3)
  1. FINASTERIDE [Suspect]
     Indication: PROSTATOMEGALY
     Route: 048
     Dates: start: 2008, end: 20121031
  2. FINASTERIDE [Suspect]
     Indication: PROSTATIC DYSPLASIA
     Route: 048
     Dates: start: 2008, end: 20121031
  3. TERAZOSIN [Concomitant]
     Indication: BLOOD PRESSURE INCREASED
     Route: 048

REACTIONS (2)
  - Prostate cancer [Not Recovered/Not Resolved]
  - Testicular neoplasm [Not Recovered/Not Resolved]
